FAERS Safety Report 17612673 (Version 4)
Quarter: 2020Q3

REPORT INFORMATION
  Report Type: Spontaneous
  Country: US (occurrence: US)
  Receive Date: 20200401
  Receipt Date: 20200805
  Transmission Date: 20201102
  Serious: Yes (Hospitalization, Other)
  Sender: FDA-Public Use
  Company Number: US-INCYTE CORPORATION-2020IN003025

PATIENT

DRUGS (3)
  1. JAKAFI [Suspect]
     Active Substance: RUXOLITINIB
     Dosage: 10 MILLIGRAM, BID
     Route: 048
     Dates: start: 20190604
  2. JAKAFI [Suspect]
     Active Substance: RUXOLITINIB
     Indication: ESSENTIAL THROMBOCYTHAEMIA
     Dosage: 10 MILLIGRAM, QD
     Route: 048
     Dates: start: 20190624
  3. JAKAFI [Suspect]
     Active Substance: RUXOLITINIB
     Dosage: 10 MILLIGRAM, BID
     Route: 048
     Dates: start: 20190624

REACTIONS (12)
  - Impaired healing [Recovering/Resolving]
  - Crohn^s disease [Unknown]
  - Treatment failure [Unknown]
  - Pyoderma gangrenosum [Unknown]
  - Arthritis [Unknown]
  - Off label use [Unknown]
  - Drug effective for unapproved indication [Unknown]
  - Dyspnoea [Unknown]
  - Cough [Unknown]
  - Musculoskeletal chest pain [Unknown]
  - Skin ulcer [Recovering/Resolving]
  - Post procedural complication [Recovering/Resolving]

NARRATIVE: CASE EVENT DATE: 20191004
